FAERS Safety Report 6840233-8 (Version None)
Quarter: 2010Q3

REPORT INFORMATION
  Report Type: 
  Country: None (occurrence: None)
  Receive Date: 20100714
  Receipt Date: 20100630
  Transmission Date: 20110219
  Serious: Yes (Other)
  Sender: FDA-Public Use
  Company Number: PHHY2010IE45392

PATIENT
  Age: 76 Year
  Sex: Male

DRUGS (11)
  1. STALEVO 100 [Suspect]
     Indication: PARKINSON'S DISEASE
  2. COMTESS [Suspect]
     Indication: PARKINSON'S DISEASE
  3. AZILECT [Suspect]
     Indication: PARKINSON'S DISEASE
  4. CIRCADIN [Suspect]
     Indication: PARKINSON'S DISEASE
     Dosage: 2 MG
  5. SINEMET [Suspect]
     Indication: PARKINSON'S DISEASE
  6. MADOPAR [Suspect]
     Indication: PARKINSON'S DISEASE
     Dosage: 100 MG /25 MG
  7. MIRAPEX [Suspect]
     Indication: PARKINSON'S DISEASE
  8. NEXIUM [Concomitant]
  9. ACETYLSALICYLIC ACID [Concomitant]
  10. RIVOTRIL [Concomitant]
  11. XANAX [Concomitant]

REACTIONS (1)
  - OBSESSIVE-COMPULSIVE PERSONALITY DISORDER [None]
